FAERS Safety Report 25815840 (Version 1)
Quarter: 2025Q3

REPORT INFORMATION
  Report Type: Spontaneous
  Country: US (occurrence: US)
  Receive Date: 20250918
  Receipt Date: 20250918
  Transmission Date: 20251021
  Serious: No
  Sender: CATALYST PHARMA
  Company Number: US-CATALYSTPHARMACEUTICALPARTNERS-US-CATA-24-01248

PATIENT
  Age: 57 Year
  Sex: Male
  Weight: 90.7 kg

DRUGS (3)
  1. FYCOMPA [Suspect]
     Active Substance: PERAMPANEL
     Indication: Product used for unknown indication
     Dosage: 4 MG TABLET -TAKE 1 TABLET EVERY NIGHT AT BEDTIME
     Route: 048
     Dates: start: 20241001, end: 2024
  2. FYCOMPA [Suspect]
     Active Substance: PERAMPANEL
     Dosage: 2 MG TABLETS
     Route: 048
     Dates: start: 2024
  3. LAMICTAL XR [Concomitant]
     Active Substance: LAMOTRIGINE
     Indication: Product used for unknown indication
     Dosage: 200 MILLIGRAM, QD
     Route: 048

REACTIONS (3)
  - Multiple drug hypersensitivity [Unknown]
  - Gait inability [Recovered/Resolved]
  - Dizziness [Recovered/Resolved]

NARRATIVE: CASE EVENT DATE: 20241022
